FAERS Safety Report 22268094 (Version 1)
Quarter: 2023Q2

REPORT INFORMATION
  Report Type: Report from Study
  Country: US (occurrence: US)
  Receive Date: 20230430
  Receipt Date: 20230430
  Transmission Date: 20230722
  Serious: No
  Sender: FDA-Public Use
  Company Number: US-002147023-NVSC2023US096639

PATIENT
  Age: 70 Year
  Sex: Female

DRUGS (1)
  1. ENTRESTO [Suspect]
     Active Substance: SACUBITRIL\VALSARTAN
     Indication: Chronic left ventricular failure
     Dosage: 0.5 DOSAGE FORM, BID (50 MG)
     Route: 048
     Dates: start: 20211101

REACTIONS (3)
  - Wrong technique in product usage process [Unknown]
  - Drug intolerance [Unknown]
  - Underdose [Unknown]

NARRATIVE: CASE EVENT DATE: 20211101
